FAERS Safety Report 9746484 (Version 2)
Quarter: 2013Q4

REPORT INFORMATION
  Report Type: Spontaneous
  Country: US (occurrence: US)
  Receive Date: 20131211
  Receipt Date: 20131211
  Transmission Date: 20140711
  Serious: No
  Sender: FDA-Public Use
  Company Number: US-BANPHARM-20131572

PATIENT
  Sex: Female

DRUGS (3)
  1. MIDOL [Suspect]
     Indication: DYSMENORRHOEA
     Route: 048
  2. MIDOL [Suspect]
     Indication: DYSMENORRHOEA
  3. MIDOL [Suspect]
     Indication: DYSMENORRHOEA

REACTIONS (1)
  - Drug screen positive [Unknown]
